FAERS Safety Report 19759003 (Version 1)
Quarter: 2021Q3

REPORT INFORMATION
  Report Type: Spontaneous
  Country: HU (occurrence: HU)
  Receive Date: 20210827
  Receipt Date: 20210827
  Transmission Date: 20211014
  Serious: Yes (Other)
  Sender: FDA-Public Use
  Company Number: HU-PFIZER INC-202101039985

PATIENT
  Sex: Female

DRUGS (2)
  1. CARDURA XL [Suspect]
     Active Substance: DOXAZOSIN MESYLATE
     Indication: HYPERTENSION
     Dosage: UNK
     Dates: start: 2016
  2. CARDURA XL [Suspect]
     Active Substance: DOXAZOSIN MESYLATE
     Dosage: UNK

REACTIONS (22)
  - Flatulence [Unknown]
  - Vision blurred [Unknown]
  - Arthralgia [Unknown]
  - Blood pressure inadequately controlled [Unknown]
  - Dyspnoea [Unknown]
  - Diplopia [Unknown]
  - Hypercoagulation [Unknown]
  - Weight increased [Unknown]
  - Contusion [Unknown]
  - Anxiety [Unknown]
  - Quality of life decreased [Unknown]
  - Arthropathy [Unknown]
  - Insomnia [Unknown]
  - Visual acuity reduced [Unknown]
  - Nocturia [Unknown]
  - Abdominal pain [Unknown]
  - Muscle spasms [Unknown]
  - Depression [Unknown]
  - Abdominal pain upper [Unknown]
  - Heart rate increased [Unknown]
  - Blood cholesterol increased [Unknown]
  - Vasoconstriction [Unknown]
